FAERS Safety Report 13902308 (Version 1)
Quarter: 2017Q3

REPORT INFORMATION
  Report Type: Spontaneous
  Country: GB (occurrence: GB)
  Receive Date: 20170824
  Receipt Date: 20170824
  Transmission Date: 20171127
  Serious: Yes (Hospitalization)
  Sender: FDA-Public Use
  Company Number: GB-ACCORD-057538

PATIENT
  Age: 71 Year
  Sex: Female

DRUGS (9)
  1. CODEINE PHOSPHATE/PARACETAMOL [Concomitant]
     Dosage: NIGHT
  2. CLOPIDOGREL [Concomitant]
     Active Substance: CLOPIDOGREL BISULFATE
     Dosage: HELD DUE TO LOW PLATELETS/PANCYTOPENIA
  3. PARACETAMOL [Concomitant]
     Active Substance: ACETAMINOPHEN
     Dosage: 4 TIMES DAILY
  4. METHOTREXATE. [Suspect]
     Active Substance: METHOTREXATE
     Indication: PRODUCT USED FOR UNKNOWN INDICATION
  5. EVACAL D3 [Concomitant]
     Dosage: 1500MG/400UNIT
  6. CARMELLOSE/CARMELLOSE CALCIUM/CARMELLOSE SODIUM [Concomitant]
     Dosage: 0.4 ML BOTH EYES
     Route: 050
  7. FOLIC ACID. [Concomitant]
     Active Substance: FOLIC ACID
     Dosage: NOT TUESDAYS
  8. OMEPRAZOLE. [Concomitant]
     Active Substance: OMEPRAZOLE
  9. SIMVASTATIN. [Concomitant]
     Active Substance: SIMVASTATIN
     Dosage: NIGHT

REACTIONS (3)
  - Blast cells present [Unknown]
  - Clostridium difficile infection [Unknown]
  - Pancytopenia [Recovered/Resolved]
